FAERS Safety Report 23946817 (Version 1)
Quarter: 2024Q2

REPORT INFORMATION
  Report Type: Spontaneous
  Country: HR (occurrence: HR)
  Receive Date: 20240606
  Receipt Date: 20240606
  Transmission Date: 20240716
  Serious: Yes (Death, Hospitalization, Other)
  Sender: FDA-Public Use
  Company Number: None

PATIENT
  Age: 73 Year
  Sex: Female

DRUGS (16)
  1. CEFUROXIME AXETIL [Suspect]
     Active Substance: CEFUROXIME AXETIL
     Indication: Escherichia urinary tract infection
     Dosage: 500 MG TWICE DAILY
     Route: 048
  2. CIPROFLOXACIN [Suspect]
     Active Substance: CIPROFLOXACIN
     Indication: Antibiotic therapy
     Dosage: 400MG
     Route: 042
  3. CORTICOSTEROID NOS [Suspect]
     Active Substance: CORTICOSTEROID NOS
     Indication: Toxic epidermal necrolysis
     Route: 065
  4. FUROSEMIDE [Suspect]
     Active Substance: FUROSEMIDE
     Indication: Chronic kidney disease
     Dosage: UNK
     Route: 065
  5. FUROSEMIDE [Suspect]
     Active Substance: FUROSEMIDE
     Indication: Hypertension
     Dosage: UNK
     Route: 065
  6. FISH OIL [Suspect]
     Active Substance: FISH OIL
     Indication: Toxic epidermal necrolysis
     Route: 065
  7. GENTAMICIN [Suspect]
     Active Substance: GENTAMICIN
     Indication: Antibiotic therapy
     Route: 061
  8. LORATADINE [Suspect]
     Active Substance: LORATADINE
     Indication: Antiallergic therapy
     Dosage: UNK
     Route: 065
  9. LORATADINE [Suspect]
     Active Substance: LORATADINE
     Dosage: UNK
     Route: 065
  10. METHYLPREDNISOLONE [Suspect]
     Active Substance: METHYLPREDNISOLONE
     Indication: Steroid therapy
     Dosage: 125MG
     Route: 042
  11. ASPIRIN [Concomitant]
     Active Substance: ASPIRIN
     Dosage: UNK
     Route: 065
  12. ASPIRIN [Concomitant]
     Active Substance: ASPIRIN
     Indication: Chronic kidney disease
     Route: 065
  13. CALCIUM CARBONATE [Concomitant]
     Active Substance: CALCIUM CARBONATE
     Indication: Chronic kidney disease
     Dosage: UNK
     Route: 065
  14. CALCIUM CARBONATE [Concomitant]
     Active Substance: CALCIUM CARBONATE
     Indication: Hypertension
     Route: 065
  15. LISINOPRIL [Concomitant]
     Active Substance: LISINOPRIL
     Dosage: UNK
     Route: 065
  16. LISINOPRIL [Concomitant]
     Active Substance: LISINOPRIL
     Indication: Chronic kidney disease
     Route: 065

REACTIONS (27)
  - Hypertension [Fatal]
  - Escherichia infection [Fatal]
  - Pyrexia [Fatal]
  - Skin disorder [Fatal]
  - Rash [Fatal]
  - Drug interaction [Fatal]
  - Body temperature increased [Fatal]
  - Keratitis [Fatal]
  - Oesophagitis haemorrhagic [Fatal]
  - Gastrointestinal haemorrhage [Fatal]
  - Staphylococcal sepsis [Fatal]
  - Toxic epidermal necrolysis [Fatal]
  - Skin lesion [Fatal]
  - Multiple organ dysfunction syndrome [Fatal]
  - Skin exfoliation [Fatal]
  - Granulocytopenia [Fatal]
  - Sepsis [Fatal]
  - Pruritus [Fatal]
  - Death [Fatal]
  - Protein total decreased [Fatal]
  - Blister [Fatal]
  - Mouth ulceration [Fatal]
  - Malaise [Fatal]
  - Leukopenia [Fatal]
  - Skin oedema [Fatal]
  - Arthralgia [Fatal]
  - Nikolsky^s sign [Fatal]
